FAERS Safety Report 8153793-4 (Version None)
Quarter: 2012Q1

REPORT INFORMATION
  Report Type: 
  Country: None (occurrence: None)
  Receive Date: 20120221
  Receipt Date: 20120215
  Transmission Date: 20120608
  Serious: Yes (Other)
  Sender: FDA-Public Use
  Company Number: FR-GLAXOSMITHKLINE-B0781695A

PATIENT
  Sex: Male
  Weight: 18 kg

DRUGS (4)
  1. KEPPRA [Concomitant]
     Indication: CONVULSION
     Route: 065
     Dates: start: 20111101, end: 20111230
  2. LAMICTAL [Suspect]
     Indication: CONVULSION
     Dosage: 2MG PER DAY
     Route: 048
     Dates: start: 20111230, end: 20120102
  3. VALPROATE SODIUM [Concomitant]
     Indication: CONVULSION
     Route: 065
     Dates: start: 20111014
  4. TOPIRAMATE [Concomitant]
     Indication: CONVULSION
     Route: 065
     Dates: start: 20111230

REACTIONS (2)
  - MUCOSA VESICLE [None]
  - DERMATITIS BULLOUS [None]
